FAERS Safety Report 9951290 (Version 3)
Quarter: 2014Q2

REPORT INFORMATION
  Report Type: Spontaneous
  Country: CZ (occurrence: CZ)
  Receive Date: 20140304
  Receipt Date: 20140424
  Transmission Date: 20141212
  Serious: Yes (Other)
  Sender: FDA-Public Use
  Company Number: CZ-PFIZER INC-2014052098

PATIENT
  Age: 80 Year
  Sex: Female

DRUGS (24)
  1. EPANUTIN [Suspect]
     Route: 042
  2. METOPROLOL TARTRATE [Interacting]
     Dosage: 50 MG, 3X/DAY
  3. AMINOPHYLLINE [Interacting]
     Dosage: 240 MG, 1X/DAY/
     Route: 042
     Dates: start: 20130321
  4. AMINOPHYLLINE [Interacting]
     Dosage: 240 MG, 2X/DAY
     Dates: start: 20130323
  5. DIGOXIN [Interacting]
     Dosage: 0.125 MG, 2X/DAY
  6. VERAPAMIL [Interacting]
  7. CLINDAMYCIN [Concomitant]
     Dosage: 900 MG, 3X/DAY
     Route: 042
  8. CIPROFLOXACIN [Concomitant]
     Dosage: 500 MG, 2X/DAY
     Route: 042
  9. CIPROFLOXACIN [Concomitant]
     Dosage: 500 MG, 2X/DAY
  10. CODEINE PHOSPHATE/PARACETAMOL [Concomitant]
     Dosage: 1 DF (500 MG PARACETAMOL/30 MG CODEIN), 3X/DAY
  11. FUROSEMIDE [Concomitant]
     Dosage: 20 MG, 1X/DAY
  12. WARFARIN [Concomitant]
     Dosage: 2.5 MG, 1X/DAY
  13. PREDNISON [Concomitant]
     Dosage: 5 MG, 1X/DAY
     Dates: end: 20130321
  14. AZATHIOPRINE [Concomitant]
     Dosage: 50 MG, 1X/DAY
  15. AMBENONIUM [Concomitant]
     Dosage: 5 MG, 3X/DAY
  16. OMEPRAZOLE [Concomitant]
     Dosage: 20 MG, 1X/DAY
  17. POTASSIUM CHLORIDE [Concomitant]
     Dosage: 500 MG, 1X/DAY
     Dates: end: 20130320
  18. POTASSIUM CHLORIDE [Concomitant]
     Dosage: 500 MG, 2X/DAY
     Dates: start: 20130321
  19. AMBROXOL [Concomitant]
     Dosage: 25 MG, 1X/DAY
     Route: 042
     Dates: start: 20130321
  20. AMBROXOL [Concomitant]
     Dosage: 25 MG, 2X/DAY
     Dates: start: 20130323
  21. FUROSEMIDE [Concomitant]
     Dosage: 40 MG, 1X/DAY
     Route: 042
     Dates: start: 20130321
  22. POTASSIUM CHLORIDE [Concomitant]
     Dosage: 750 MG, 1X/DAY
     Route: 042
  23. METHYLPREDNISOLONE [Concomitant]
     Dosage: 80 MG, 1X/DAY
     Route: 042
  24. SPIRONOLACTONE [Concomitant]
     Dosage: 25 MG, 1X/DAY

REACTIONS (2)
  - Drug interaction [Recovered/Resolved]
  - Cardiac arrest [Recovered/Resolved]
